FAERS Safety Report 7892651-7 (Version None)
Quarter: 2011Q4

REPORT INFORMATION
  Report Type: 
  Country: None (occurrence: None)
  Receive Date: 20111102
  Receipt Date: 20111026
  Transmission Date: 20120403
  Serious: Yes (Other)
  Sender: FDA-Public Use
  Company Number: TPA2011A06949

PATIENT
  Age: 65 Year
  Sex: Male
  Weight: 83.4619 kg

DRUGS (3)
  1. ACTOS [Suspect]
     Indication: TYPE 2 DIABETES MELLITUS
     Dosage: 45 MG, 1 IN 1 D, PER ORAL
     Route: 048
     Dates: start: 20080701, end: 20110912
  2. FLOMAX [Concomitant]
  3. AVODART [Concomitant]

REACTIONS (8)
  - NEPHROLITHIASIS [None]
  - ADRENAL ADENOMA [None]
  - BLADDER CANCER [None]
  - DYSURIA [None]
  - RENAL CYST [None]
  - POLLAKIURIA [None]
  - BENIGN PROSTATIC HYPERPLASIA [None]
  - DIVERTICULUM INTESTINAL [None]
